FAERS Safety Report 8606860-2 (Version None)
Quarter: 2012Q3

REPORT INFORMATION
  Report Type: 
  Country: None (occurrence: None)
  Receive Date: 20120820
  Receipt Date: 20120618
  Transmission Date: 20120928
  Serious: No
  Sender: FDA-Public Use
  Company Number: US-009507513-2012SP032567

PATIENT

DRUGS (1)
  1. COPPERTONE SPORT CONTINUOUS SPRAY SPF-30 [Suspect]
     Indication: HEAVY EXPOSURE TO ULTRAVIOLET LIGHT
     Dosage: UNK, UNKNOWN
     Route: 061
     Dates: start: 20120519

REACTIONS (3)
  - EYE PAIN [None]
  - ACCIDENTAL EXPOSURE [None]
  - EYE BURNS [None]
